FAERS Safety Report 25228805 (Version 2)
Quarter: 2025Q2

REPORT INFORMATION
  Report Type: Spontaneous
  Country: US (occurrence: US)
  Receive Date: 20250423
  Receipt Date: 20250423
  Transmission Date: 20250716
  Serious: No
  Sender: SANDOZ
  Company Number: US-SANDOZ-SDZ2025US025001

PATIENT
  Sex: Female

DRUGS (2)
  1. ALBUTEROL SULFATE [Suspect]
     Active Substance: ALBUTEROL SULFATE
     Indication: Lung disorder
     Dosage: 90 MCG, 2 INHALATIONS EVERY FOUR HOURS
     Route: 065
     Dates: start: 202504
  2. ALBUTEROL SULFATE [Suspect]
     Active Substance: ALBUTEROL SULFATE
     Route: 065
     Dates: start: 202504

REACTIONS (3)
  - Drug ineffective [Unknown]
  - Incorrect dose administered by device [Unknown]
  - Device delivery system issue [Unknown]
